FAERS Safety Report 16478671 (Version 1)
Quarter: 2019Q2

REPORT INFORMATION
  Report Type: Spontaneous
  Country: US (occurrence: US)
  Receive Date: 20190626
  Receipt Date: 20190626
  Transmission Date: 20190711
  Serious: Yes (Other)
  Sender: FDA-Public Use
  Company Number: US-PFIZER INC-2018398431

PATIENT
  Age: 57 Year
  Sex: Female
  Weight: 86.18 kg

DRUGS (2)
  1. LYRICA [Suspect]
     Active Substance: PREGABALIN
     Dosage: UNK, 2X/DAY
  2. LYRICA [Suspect]
     Active Substance: PREGABALIN
     Indication: FIBROMYALGIA
     Dosage: 300 MG, 3X/DAY (ONE TID)

REACTIONS (4)
  - Pain [Unknown]
  - Prescribed overdose [Unknown]
  - Weight increased [Unknown]
  - Withdrawal syndrome [Unknown]
